FAERS Safety Report 14664500 (Version 4)
Quarter: 2023Q2

REPORT INFORMATION
  Report Type: Spontaneous
  Country: FR (occurrence: FR)
  Receive Date: 20180321
  Receipt Date: 20230520
  Transmission Date: 20230721
  Serious: Yes (Life-Threatening, Other)
  Sender: FDA-Public Use
  Company Number: FR-AUROBINDO-AUR-APL-2018-015547

PATIENT
  Age: 67 Year
  Sex: Male

DRUGS (8)
  1. EPHEDRINE [Suspect]
     Active Substance: EPHEDRINE
     Indication: General anaesthesia
     Dosage: 27 MILLIGRAM, ONCE A DAY
     Route: 042
     Dates: start: 20170804
  2. AMOXICILLIN\CLAVULANIC ACID [Suspect]
     Active Substance: AMOXICILLIN\CLAVULANIC ACID
     Indication: Antibiotic prophylaxis
     Dosage: 2 GRAM, ONCE A DAY
     Route: 042
     Dates: start: 20170804, end: 20170804
  3. LIDOCAINE [Suspect]
     Active Substance: LIDOCAINE
     Indication: General anaesthesia
     Dosage: UNK
     Route: 008
     Dates: start: 20170804
  4. PROPOFOL [Suspect]
     Active Substance: PROPOFOL
     Indication: Product used for unknown indication
     Dosage: 150 MILLIGRAM, ONCE A DAY
     Route: 042
     Dates: start: 20170804, end: 20170804
  5. ULTIVA [Suspect]
     Active Substance: REMIFENTANIL HYDROCHLORIDE
     Indication: General anaesthesia
     Dosage: 1 MILLIGRAM, ONCE A DAY
     Route: 042
     Dates: start: 20170804, end: 20170804
  6. CISATRACURIUM [Suspect]
     Active Substance: CISATRACURIUM
     Indication: General anaesthesia
     Dosage: 10 MILLIGRAM, ONCE A DAY
     Route: 042
     Dates: start: 20170804, end: 20170804
  7. KETAMINE [Suspect]
     Active Substance: KETAMINE
     Indication: General anaesthesia
     Dosage: 30 MILLIGRAM, ONCE A DAY
     Route: 042
     Dates: start: 20170804, end: 20170804
  8. DEXAMETHASONE [Suspect]
     Active Substance: DEXAMETHASONE
     Indication: General anaesthesia
     Dosage: 8 MILLIGRAM, ONCE A DAY
     Route: 042
     Dates: start: 20170804, end: 20170804

REACTIONS (2)
  - Anaphylactic shock [Recovered/Resolved]
  - Bronchospasm [Recovered/Resolved]

NARRATIVE: CASE EVENT DATE: 20170804
